FAERS Safety Report 18552036 (Version 5)
Quarter: 2022Q2

REPORT INFORMATION
  Report Type: Other
  Country: CA (occurrence: CA)
  Receive Date: 20201127
  Receipt Date: 20220418
  Transmission Date: 20220720
  Serious: Yes (Death, Other)
  Sender: FDA-Public Use
  Company Number: CA-CELLTRION INC.-2020CA032222

PATIENT

DRUGS (19)
  1. RITUXIMAB [Suspect]
     Active Substance: RITUXIMAB
     Indication: Rheumatoid arthritis
     Dosage: 1000 MILLIGRAM
     Route: 042
  2. ACTEMRA [Suspect]
     Active Substance: TOCILIZUMAB
     Indication: Rheumatoid arthritis
     Dosage: 260 MILLIGRAM, 1 EVERY 4 WEEKS
     Route: 042
  3. ACTEMRA [Suspect]
     Active Substance: TOCILIZUMAB
     Dosage: 280 MILLIGRAM, 1 EVERY 4 WEEKS
     Route: 042
  4. ACTEMRA [Suspect]
     Active Substance: TOCILIZUMAB
     Dosage: 260 MILLIGRAM, 1 EVERY 4 WEEKS
     Route: 042
  5. ACTEMRA [Suspect]
     Active Substance: TOCILIZUMAB
     Dosage: 360 MILLIGRAM, 1 EVERY 4 WEEKS
     Route: 042
  6. ACTEMRA [Suspect]
     Active Substance: TOCILIZUMAB
     Dosage: 460 MILLIGRAM, 1 EVERY 4 WEEKS
     Route: 042
  7. ACTEMRA [Suspect]
     Active Substance: TOCILIZUMAB
     Dosage: 260 MILLIGRAM, 1 EVERY 4 WEEKS
     Route: 042
  8. ACTEMRA [Suspect]
     Active Substance: TOCILIZUMAB
     Indication: Rheumatoid arthritis
     Dosage: 320 MILLIGRAM, 1 EVERY 4 WEEKS
     Route: 042
  9. ACETAMINOPHEN [Concomitant]
     Active Substance: ACETAMINOPHEN
     Indication: Premedication
     Dosage: 1000 MILLIGRAM
     Route: 048
  10. DIPHENHYDRAMINE HYDROCHLORIDE [Concomitant]
     Active Substance: DIPHENHYDRAMINE HYDROCHLORIDE
     Indication: Premedication
     Dosage: 50 MILLIGRAM
     Route: 048
  11. ERYTHROMYCIN [Concomitant]
     Active Substance: ERYTHROMYCIN
     Route: 065
  12. FOLIC ACID [Concomitant]
     Active Substance: FOLIC ACID
     Route: 065
  13. FOSAMAX [Concomitant]
     Active Substance: ALENDRONATE SODIUM
     Route: 048
  14. IRON [Concomitant]
     Active Substance: IRON
  15. METHOTREXATE [Concomitant]
     Active Substance: METHOTREXATE
     Route: 065
  16. METHYLPREDNISOLONE [Concomitant]
     Active Substance: METHYLPREDNISOLONE
     Indication: Premedication
     Dosage: 100 MILLIGRAM
     Route: 042
  17. RABEPRAZOLE [Concomitant]
     Active Substance: RABEPRAZOLE
     Route: 065
  18. REACTINE [Concomitant]
     Route: 065
  19. TYLENOL 8 HR ARTHRITIS PAIN [Concomitant]
     Active Substance: ACETAMINOPHEN
     Route: 065

REACTIONS (32)
  - Bell^s palsy [Fatal]
  - Body temperature increased [Fatal]
  - Decreased appetite [Fatal]
  - Dry eye [Fatal]
  - Eye inflammation [Fatal]
  - Food poisoning [Fatal]
  - Malaise [Fatal]
  - Productive cough [Fatal]
  - Respiratory rate increased [Fatal]
  - Rheumatoid arthritis [Fatal]
  - Skin lesion [Fatal]
  - Systemic lupus erythematosus [Fatal]
  - Upper-airway cough syndrome [Fatal]
  - Weight decreased [Fatal]
  - Weight increased [Fatal]
  - Wound dehiscence [Fatal]
  - Bronchitis [Fatal]
  - Dyspnoea [Fatal]
  - Heart rate increased [Fatal]
  - Herpes virus infection [Fatal]
  - Infection [Fatal]
  - Nasopharyngitis [Fatal]
  - Nausea [Fatal]
  - Oropharyngeal pain [Fatal]
  - Pneumonia [Fatal]
  - Pyrexia [Fatal]
  - Pruritus [Fatal]
  - Rash [Fatal]
  - Vomiting [Fatal]
  - Cardiac failure [Fatal]
  - Respiratory failure [Fatal]
  - Therapeutic response decreased [Fatal]
